FAERS Safety Report 4624719-2 (Version None)
Quarter: 2005Q1

REPORT INFORMATION
  Report Type: 
  Country: None (occurrence: None)
  Receive Date: 20050107
  Receipt Date: 20041022
  Transmission Date: 20050727
  Serious: No
  Sender: FDA-Public Use
  Company Number: 235332K04USA

PATIENT
  Age: 35 Year
  Sex: Female

DRUGS (1)
  1. REBIF [Suspect]
     Indication: MULTIPLE SCLEROSIS
     Dosage: 22 MCG, 3 IN 1 WEEKS, SUBCUTANEOUS
     Route: 058
     Dates: start: 20040927

REACTIONS (10)
  - ANOREXIA [None]
  - ASTHENIA [None]
  - DECREASED APPETITE [None]
  - DEPERSONALISATION [None]
  - DIZZINESS [None]
  - DIZZINESS POSTURAL [None]
  - DYSPHAGIA [None]
  - FATIGUE [None]
  - FEELING ABNORMAL [None]
  - WEIGHT DECREASED [None]
